FAERS Safety Report 8915387 (Version 1)
Quarter: 2012Q4

REPORT INFORMATION
  Report Type: 
  Country: GB (occurrence: GB)
  Receive Date: 20121119
  Receipt Date: 20121119
  Transmission Date: 20130627
  Serious: Yes (Death, Hospitalization, Other)
  Sender: FDA-Public Use
  Company Number: GB-PFIZER INC-2012286810

PATIENT
  Age: 73 Year
  Sex: Male
  Weight: 67.3 kg

DRUGS (6)
  1. GEMCITABINE HYDROCHLORIDE [Suspect]
     Indication: PANCREATIC CANCER
     Dosage: 1862 mg, cyclic  2 times
     Route: 042
     Dates: start: 20120507, end: 20120907
  2. BISOPROLOL [Concomitant]
  3. CREON [Concomitant]
  4. GRANISETRON [Concomitant]
  5. LOPERAMIDE [Concomitant]
  6. WARFARIN [Concomitant]

REACTIONS (6)
  - Pneumonitis [Fatal]
  - Dyspnoea [Unknown]
  - Malaise [Unknown]
  - Hypoxia [Unknown]
  - Thrombosis [Not Recovered/Not Resolved]
  - Ischaemia [Unknown]
